FAERS Safety Report 5895328-2 (Version None)
Quarter: 2008Q3

REPORT INFORMATION
  Report Type: 
  Country: None (occurrence: None)
  Receive Date: 20080924
  Receipt Date: 20080912
  Transmission Date: 20090109
  Serious: Yes (Hospitalization)
  Sender: FDA-Public Use
  Company Number: US-SANOFI-SYNTHELABO-F03200800098

PATIENT
  Sex: Male
  Weight: 68 kg

DRUGS (3)
  1. CAPECITABINE [Suspect]
     Indication: OESOPHAGEAL CARCINOMA
     Dosage: 1000 MG/M2
     Route: 048
     Dates: start: 20071030
  2. DOCETAXEL [Suspect]
     Indication: OESOPHAGEAL CARCINOMA
     Dosage: 20 MG/M2
     Route: 042
     Dates: start: 20071212, end: 20071212
  3. OXALIPLATIN [Suspect]
     Indication: OESOPHAGEAL CARCINOMA
     Dosage: 40 MG/M2
     Route: 042
     Dates: start: 20071212, end: 20071212

REACTIONS (1)
  - HIATUS HERNIA [None]
